FAERS Safety Report 10062480 (Version 1)
Quarter: 2014Q2

REPORT INFORMATION
  Report Type: Spontaneous
  Country: US (occurrence: US)
  Receive Date: 20140407
  Receipt Date: 20140407
  Transmission Date: 20141212
  Serious: No
  Sender: FDA-Public Use
  Company Number: US-009507513-1403USA014149

PATIENT
  Sex: Female

DRUGS (2)
  1. DULERA [Suspect]
     Indication: ASTHMA
     Dosage: UNK
     Route: 055
  2. DULERA [Suspect]
     Indication: ASTHMA
     Dosage: UNK
     Route: 055

REACTIONS (1)
  - No therapeutic response [Unknown]
